FAERS Safety Report 6542367-4 (Version None)
Quarter: 2010Q1

REPORT INFORMATION
  Report Type: 
  Country: None (occurrence: None)
  Receive Date: 20100114
  Receipt Date: 20100114
  Transmission Date: 20100710
  Serious: Yes (Death)
  Sender: FDA-Public Use
  Company Number: None

PATIENT
  Age: 36 Year
  Sex: Male
  Weight: 85 kg

DRUGS (2)
  1. HALOPERIDOL LACTATE [Suspect]
     Indication: HALLUCINATION
     Dosage: 5MG Q6H IV BOLUS
     Route: 040
     Dates: start: 20100106, end: 20100106
  2. ZIPRASIDONE HCL [Suspect]
     Indication: HALLUCINATION
     Dosage: 20 MG ONCE IM
     Route: 030
     Dates: start: 20100106, end: 20100106

REACTIONS (9)
  - AGITATION [None]
  - BLOOD PRESSURE DECREASED [None]
  - BLOOD PRESSURE INCREASED [None]
  - CARDIAC ARREST [None]
  - HALLUCINATIONS, MIXED [None]
  - NEUROLEPTIC MALIGNANT SYNDROME [None]
  - OXYGEN SATURATION DECREASED [None]
  - RESTLESSNESS [None]
  - TACHYCARDIA [None]
